APPROVED DRUG PRODUCT: BUTALBITAL, ACETAMINOPHEN AND CAFFEINE
Active Ingredient: ACETAMINOPHEN; BUTALBITAL; CAFFEINE
Strength: 325MG;50MG;40MG
Dosage Form/Route: CAPSULE;ORAL
Application: A216376 | Product #001 | TE Code: AA
Applicant: QUAGEN PHARMACEUTICALS LLC
Approved: Mar 12, 2024 | RLD: No | RS: No | Type: RX